FAERS Safety Report 5115342-4 (Version None)
Quarter: 2006Q3

REPORT INFORMATION
  Report Type: 
  Country: None (occurrence: None)
  Receive Date: 20060922
  Receipt Date: 20060905
  Transmission Date: 20061208
  Serious: Yes (Hospitalization)
  Sender: FDA-Public Use
  Company Number: 2006-08-0388

PATIENT
  Sex: Male
  Weight: 69 kg

DRUGS (5)
  1. TEMODAL [Suspect]
     Indication: BRAIN NEOPLASM
     Dosage: 105 MG; QD; PO
     Route: 048
     Dates: start: 20060707
  2. WARFARIN SODIUM [Concomitant]
  3. ATIVAN [Concomitant]
  4. DECADRON [Concomitant]
  5. KEPPRA [Concomitant]

REACTIONS (5)
  - CALCINOSIS [None]
  - CONFUSIONAL STATE [None]
  - DYSPHASIA [None]
  - GRAND MAL CONVULSION [None]
  - SPEECH DISORDER [None]
